FAERS Safety Report 7345967-7 (Version None)
Quarter: 2011Q1

REPORT INFORMATION
  Report Type: 
  Country: None (occurrence: None)
  Receive Date: 20110311
  Receipt Date: 20110304
  Transmission Date: 20110831
  Serious: No
  Sender: FDA-Public Use
  Company Number: US-BIOGENIDEC-2011BI008653

PATIENT
  Age: 31 Year
  Sex: Female

DRUGS (1)
  1. TYSABRI [Suspect]
     Indication: MULTIPLE SCLEROSIS
     Route: 042
     Dates: start: 20061120, end: 20101101

REACTIONS (5)
  - ASTHENIA [None]
  - MULTIPLE SCLEROSIS [None]
  - DIPLOPIA [None]
  - DEPRESSION [None]
  - BALANCE DISORDER [None]
